FAERS Safety Report 18489837 (Version 2)
Quarter: 2020Q4

REPORT INFORMATION
  Report Type: Report from Study
  Country: IN (occurrence: IN)
  Receive Date: 20201111
  Receipt Date: 20201119
  Transmission Date: 20210114
  Serious: Yes (Other)
  Sender: FDA-Public Use
  Company Number: NVSC2019IN051226

PATIENT
  Age: 58 Year
  Sex: Female

DRUGS (4)
  1. REVOLADE [Suspect]
     Active Substance: ELTROMBOPAG
     Dosage: 25 MG (2 TABLET PER WEEK)
     Route: 048
     Dates: start: 20191120, end: 20200701
  2. REVOLADE [Suspect]
     Active Substance: ELTROMBOPAG
     Dosage: 25 MG, QW
     Route: 048
     Dates: start: 20190722, end: 20191119
  3. REVOLADE [Suspect]
     Active Substance: ELTROMBOPAG
     Dosage: 150 MG, QD
     Route: 065
     Dates: start: 20200702, end: 202010
  4. REVOLADE [Suspect]
     Active Substance: ELTROMBOPAG
     Indication: APLASTIC ANAEMIA
     Dosage: 25 MG, QD
     Route: 048
     Dates: start: 20190121, end: 20190720

REACTIONS (6)
  - Haemoglobin decreased [Unknown]
  - Product prescribing error [Unknown]
  - Disease progression [Not Recovered/Not Resolved]
  - Inappropriate schedule of product administration [Unknown]
  - Aplastic anaemia [Not Recovered/Not Resolved]
  - Platelet count decreased [Unknown]

NARRATIVE: CASE EVENT DATE: 20191119
